FAERS Safety Report 7231576-7 (Version None)
Quarter: 2011Q1

REPORT INFORMATION
  Report Type: 
  Country: None (occurrence: None)
  Receive Date: 20110118
  Receipt Date: 20101012
  Transmission Date: 20110831
  Serious: No
  Sender: FDA-Public Use
  Company Number: US-BAYER-201022466BCC

PATIENT
  Sex: Male
  Weight: 113.64 kg

DRUGS (2)
  1. ALEVE [Suspect]
     Indication: HEADACHE
     Dosage: 220 MG, UNK
     Route: 048
  2. ALEVE [Suspect]
     Indication: MYALGIA

REACTIONS (2)
  - MYALGIA [None]
  - HEADACHE [None]
